FAERS Safety Report 23578745 (Version 1)
Quarter: 2024Q1

REPORT INFORMATION
  Report Type: Spontaneous
  Country: IL (occurrence: IL)
  Receive Date: 20240229
  Receipt Date: 20240229
  Transmission Date: 20240410
  Serious: Yes (Other)
  Sender: FDA-Public Use
  Company Number: IL-ALXN-202402ISR001074ILAA

PATIENT
  Age: 92 Year
  Sex: Male

DRUGS (1)
  1. SOLIRIS [Suspect]
     Active Substance: ECULIZUMAB
     Indication: Paroxysmal nocturnal haemoglobinuria
     Dosage: UNK
     Route: 065
     Dates: start: 20230504

REACTIONS (2)
  - Blastic plasmacytoid dendritic cell neoplasia [Unknown]
  - Breakthrough haemolysis [Unknown]
